APPROVED DRUG PRODUCT: LEVOTHYROXINE SODIUM
Active Ingredient: LEVOTHYROXINE SODIUM
Strength: 100MCG/VIAL
Dosage Form/Route: POWDER;INTRAVENOUS
Application: A206163 | Product #001 | TE Code: AP
Applicant: PIRAMAL CRITICAL CARE LTD
Approved: Jun 29, 2016 | RLD: No | RS: No | Type: RX